FAERS Safety Report 5609217-1 (Version None)
Quarter: 2008Q1

REPORT INFORMATION
  Report Type: 
  Country: None (occurrence: None)
  Receive Date: 20080131
  Receipt Date: 20080123
  Transmission Date: 20080703
  Serious: Yes (Other)
  Sender: FDA-Public Use
  Company Number: US-BAYER-200810056BCC

PATIENT
  Age: 76 Year
  Sex: Female
  Weight: 44 kg

DRUGS (3)
  1. ASPIRIN [Suspect]
     Indication: HEADACHE
     Dosage: UNIT DOSE: 325 MG
     Route: 048
  2. ASPIRIN [Suspect]
     Indication: DRUG USE FOR UNKNOWN INDICATION
  3. SYNTHROID [Concomitant]
     Indication: DRUG USE FOR UNKNOWN INDICATION
     Route: 065

REACTIONS (3)
  - CEREBROVASCULAR ACCIDENT [None]
  - CORONARY ARTERY BYPASS [None]
  - ULCER HAEMORRHAGE [None]
